FAERS Safety Report 6579537-5 (Version None)
Quarter: 2010Q1

REPORT INFORMATION
  Report Type: 
  Country: None (occurrence: None)
  Receive Date: 20100212
  Receipt Date: 20100202
  Transmission Date: 20100710
  Serious: Yes (Disabling, Other)
  Sender: FDA-Public Use
  Company Number: NZ-PFIZER INC-2009305858

PATIENT
  Age: 57 Year
  Sex: Female
  Weight: 62 kg

DRUGS (3)
  1. LIPITOR [Suspect]
     Indication: BLOOD CHOLESTEROL INCREASED
     Dosage: 10 MG, 1X/DAY
     Route: 048
     Dates: start: 20090506, end: 20091111
  2. BECLOMETASONE DIPROPIONATE [Concomitant]
     Indication: SEASONAL ALLERGY
     Dosage: 2 PUFFS, TWICE DAILY
  3. AMOXIL [Concomitant]
     Indication: SINUSITIS
     Dosage: UNK
     Route: 048
     Dates: start: 20090921, end: 20090927

REACTIONS (2)
  - POLYNEUROPATHY [None]
  - SINUSITIS [None]
